FAERS Safety Report 14928693 (Version 1)
Quarter: 2018Q2

REPORT INFORMATION
  Report Type: Spontaneous
  Country: US (occurrence: US)
  Receive Date: 20180504
  Receipt Date: 20180504
  Transmission Date: 20180711
  Serious: Yes (Hospitalization)
  Sender: FDA-Public Use
  Company Number: None

PATIENT
  Age: 51 Year
  Sex: Male

DRUGS (2)
  1. EPCLUSA [Suspect]
     Active Substance: SOFOSBUVIR\VELPATASVIR
     Indication: HEPATITIS C
     Dosage: 1 TAB DAILY PO?CURRENT
     Route: 048
     Dates: start: 20180409
  2. RIBAVIRIN. [Suspect]
     Active Substance: RIBAVIRIN
     Indication: HEPATITIS C
     Dosage: 2 TABS BID PO?CURRENT
     Route: 048
     Dates: start: 20180409

REACTIONS (3)
  - Wrong drug administered [None]
  - Drug dose omission [None]
  - Oedema peripheral [None]

NARRATIVE: CASE EVENT DATE: 20180425
